FAERS Safety Report 19895668 (Version 1)
Quarter: 2021Q3

REPORT INFORMATION
  Report Type: Spontaneous
  Country: IN (occurrence: IN)
  Receive Date: 20210929
  Receipt Date: 20210929
  Transmission Date: 20211014
  Serious: Yes (Death, Life-Threatening, Hospitalization, Other)
  Sender: FDA-Public Use
  Company Number: IN-ACCORD-239321

PATIENT
  Age: 64 Year
  Sex: Male

DRUGS (3)
  1. PREDNISOLONE. [Suspect]
     Active Substance: PREDNISOLONE
     Indication: IMMUNOSUPPRESSANT DRUG THERAPY
  2. MYCOPHENOLATE MOFETIL/MYCOPHENOLATE SODIUM/MYCOPHENOLIC ACID [Suspect]
     Active Substance: MYCOPHENOLIC ACID
     Indication: IMMUNOSUPPRESSANT DRUG THERAPY
  3. TACROLIMUS. [Suspect]
     Active Substance: TACROLIMUS
     Indication: IMMUNOSUPPRESSANT DRUG THERAPY

REACTIONS (7)
  - Respiratory distress [Fatal]
  - Melaena [Fatal]
  - Brunner^s gland hyperplasia [Fatal]
  - Histoplasmosis disseminated [Fatal]
  - Pleural effusion [Fatal]
  - Shock [Fatal]
  - Post transplant lymphoproliferative disorder [Fatal]
